FAERS Safety Report 23063267 (Version 1)
Quarter: 2023Q4

REPORT INFORMATION
  Report Type: Report from Study
  Country: PH (occurrence: None)
  Receive Date: 20231013
  Receipt Date: 20231013
  Transmission Date: 20240110
  Serious: Yes (Other)
  Sender: FDA-Public Use
  Company Number: 2023A229098

PATIENT

DRUGS (1)
  1. TAGRISSO [Suspect]
     Active Substance: OSIMERTINIB

REACTIONS (1)
  - Angina pectoris [Unknown]
